FAERS Safety Report 9786549 (Version 4)
Quarter: 2014Q2

REPORT INFORMATION
  Report Type: Spontaneous
  Country: FI (occurrence: FI)
  Receive Date: 20131227
  Receipt Date: 20140620
  Transmission Date: 20141212
  Serious: Yes (Other)
  Sender: FDA-Public Use
  Company Number: FI-NOVOPROD-396379

PATIENT
  Age: 64 Year
  Sex: Female
  Weight: 50 kg

DRUGS (25)
  1. LEVEMIR FLEXPEN [Suspect]
     Indication: TYPE 1 DIABETES MELLITUS
     Dosage: UNK
     Route: 058
     Dates: start: 20131213
  2. LEVEMIR FLEXPEN [Interacting]
     Dosage: 3 U, BID (MORNING AT 09.30 AM AND EVENING AT 20.00 PM)
     Route: 058
  3. NOVORAPID FLEXPEN [Interacting]
     Indication: TYPE 1 DIABETES MELLITUS
     Dosage: UNK
     Route: 065
  4. NOVORAPID FLEXPEN [Interacting]
     Dosage: 3-5 UNITS PRIOR MEALS
     Route: 065
  5. LANTUS [Interacting]
     Indication: TYPE 1 DIABETES MELLITUS
     Dosage: QD (UNKNOWN DAILY DOSE)
     Route: 058
     Dates: end: 201312
  6. ENBREL [Interacting]
     Indication: RHEUMATOID ARTHRITIS
     Dosage: UNK
     Route: 065
     Dates: start: 2007, end: 201211
  7. HUMIRA [Interacting]
     Indication: RHEUMATOID ARTHRITIS
     Dosage: 40 MG EVERY SECOND WEEK
     Route: 065
     Dates: start: 201211
  8. SOMAC [Concomitant]
     Indication: PRODUCT USED FOR UNKNOWN INDICATION
  9. SOLOMET                            /00049601/ [Concomitant]
     Indication: PRODUCT USED FOR UNKNOWN INDICATION
  10. PAMOL [Concomitant]
     Indication: PRODUCT USED FOR UNKNOWN INDICATION
  11. ARCOXIA [Concomitant]
     Indication: PRODUCT USED FOR UNKNOWN INDICATION
  12. CLOPIDOGREL [Concomitant]
     Indication: PRODUCT USED FOR UNKNOWN INDICATION
  13. PROPRAL [Concomitant]
     Indication: PRODUCT USED FOR UNKNOWN INDICATION
  14. SIMVASTATIN [Concomitant]
     Indication: PRODUCT USED FOR UNKNOWN INDICATION
     Dosage: 20 MG, QD
  15. OPAMOX [Concomitant]
     Indication: PRODUCT USED FOR UNKNOWN INDICATION
     Dosage: 50 MG, QD
  16. CALCICHEW D3 FORTE [Concomitant]
     Indication: PRODUCT USED FOR UNKNOWN INDICATION
  17. ATARAX                             /00058401/ [Concomitant]
     Indication: PRODUCT USED FOR UNKNOWN INDICATION
  18. PANACOD [Concomitant]
     Indication: PRODUCT USED FOR UNKNOWN INDICATION
  19. VITAMIN C                          /00008001/ [Concomitant]
     Indication: PRODUCT USED FOR UNKNOWN INDICATION
  20. BETOLVEX                           /00056201/ [Concomitant]
     Indication: PRODUCT USED FOR UNKNOWN INDICATION
     Dosage: 1 MG, QD
  21. PRIMPERAN [Concomitant]
     Indication: PRODUCT USED FOR UNKNOWN INDICATION
  22. JANUMET [Concomitant]
     Dosage: 4 MGX1
  23. FEMOSTON [Concomitant]
     Dosage: 1X1X EVERY OTHER DAY
     Route: 065
  24. FURESIS [Concomitant]
     Dosage: 20 MG 1
     Route: 065
  25. OMEPRAZOL                          /00661201/ [Concomitant]
     Dosage: 20 MGX2
     Route: 065

REACTIONS (7)
  - Drug interaction [Recovered/Resolved]
  - Fall [Recovered/Resolved]
  - Wound [Recovered/Resolved]
  - Contusion [Recovered/Resolved]
  - Hypoglycaemia [Not Recovered/Not Resolved]
  - Loss of consciousness [Recovered/Resolved]
  - Epilepsy [Recovered/Resolved]
